FAERS Safety Report 11056225 (Version 3)
Quarter: 2015Q2

REPORT INFORMATION
  Report Type: Spontaneous
  Country: US (occurrence: US)
  Receive Date: 20150422
  Receipt Date: 20150618
  Transmission Date: 20150821
  Serious: No
  Sender: FDA-Public Use
  Company Number: US-ELI_LILLY_AND_COMPANY-US201504000176

PATIENT
  Sex: Female
  Weight: 46.26 kg

DRUGS (5)
  1. ADCIRCA [Suspect]
     Active Substance: TADALAFIL
     Indication: PRODUCT USED FOR UNKNOWN INDICATION
     Dosage: UNK
     Route: 065
  2. ORENITRAM [Suspect]
     Active Substance: TREPROSTINIL
     Indication: PULMONARY ARTERIAL HYPERTENSION
     Dosage: 8.75 MG, TID
     Route: 048
     Dates: start: 20141020
  3. ORENITRAM [Suspect]
     Active Substance: TREPROSTINIL
     Dosage: 9 MG, TID
     Route: 065
     Dates: start: 20150325
  4. ORENITRAM [Suspect]
     Active Substance: TREPROSTINIL
     Dosage: 10 MG, TID
     Route: 048
  5. LETAIRIS [Suspect]
     Active Substance: AMBRISENTAN
     Indication: PULMONARY ARTERIAL HYPERTENSION
     Dosage: 10 MG, QD
     Route: 065
     Dates: start: 20130624

REACTIONS (10)
  - Headache [Unknown]
  - Erythema [Unknown]
  - Abdominal pain upper [Unknown]
  - Vomiting [Unknown]
  - Pain in extremity [Unknown]
  - Nail discolouration [Unknown]
  - Flushing [Unknown]
  - Joint swelling [Unknown]
  - Nausea [Unknown]
  - Peripheral swelling [Unknown]
